FAERS Safety Report 11818130 (Version 1)
Quarter: 2015Q4

REPORT INFORMATION
  Report Type: Spontaneous
  Country: US (occurrence: None)
  Receive Date: 20151209
  Receipt Date: 20151209
  Transmission Date: 20160305
  Serious: Yes (Hospitalization)
  Sender: FDA-Public Use
  Company Number: None

PATIENT
  Age: 76 Year
  Sex: Female
  Weight: 84.4 kg

DRUGS (16)
  1. LOPRESSOR [Concomitant]
     Active Substance: METOPROLOL TARTRATE
  2. APAP [Concomitant]
     Active Substance: ACETAMINOPHEN
  3. ALDACTONE [Concomitant]
     Active Substance: SPIRONOLACTONE
  4. ALEVE [Concomitant]
     Active Substance: NAPROXEN SODIUM
  5. ALBUTEROL. [Concomitant]
     Active Substance: ALBUTEROL
  6. THERAGRAN [Concomitant]
     Active Substance: VITAMINS
  7. PROTONIX [Concomitant]
     Active Substance: PANTOPRAZOLE SODIUM
  8. PRAVACHOL [Concomitant]
     Active Substance: PRAVASTATIN SODIUM
  9. ASA [Concomitant]
     Active Substance: ASPIRIN
  10. ECOTRIN [Suspect]
     Active Substance: ASPIRIN
     Indication: CORONARY ARTERIAL STENT INSERTION
     Dosage: CHRONIC
     Route: 048
  11. K-DUR [Concomitant]
     Active Substance: POTASSIUM CHLORIDE
  12. ANTIVERT [Concomitant]
     Active Substance: MECLIZINE HYDROCHLORIDE
  13. COUMADIN [Suspect]
     Active Substance: WARFARIN SODIUM
     Indication: CORONARY ARTERIAL STENT INSERTION
     Dosage: 2.5 MG, TUESDAYS ?
     Route: 048
  14. BUMEX [Concomitant]
     Active Substance: BUMETANIDE
  15. NTG [Concomitant]
     Active Substance: NITROGLYCERIN
  16. EXCEDRIN [Concomitant]
     Active Substance: ACETAMINOPHEN\ASPIRIN\CAFFEINE

REACTIONS (3)
  - Gastrointestinal haemorrhage [None]
  - Haemorrhagic anaemia [None]
  - Gastric ulcer [None]

NARRATIVE: CASE EVENT DATE: 20150511
